FAERS Safety Report 14178162 (Version 9)
Quarter: 2023Q1

REPORT INFORMATION
  Report Type: Report from Study
  Country: US (occurrence: US)
  Receive Date: 20171110
  Receipt Date: 20230209
  Transmission Date: 20230417
  Serious: Yes (Death, Hospitalization, Other)
  Sender: FDA-Public Use
  Company Number: US-ACADIA PHARMACEUTICALS INC.-ACA-2017-005410

PATIENT
  Age: 69 Year
  Sex: Male

DRUGS (27)
  1. NUPLAZID [Suspect]
     Active Substance: PIMAVANSERIN TARTRATE
     Indication: Parkinson^s disease
     Dosage: 34 MG, QD
     Route: 048
     Dates: end: 201904
  2. NUPLAZID [Suspect]
     Active Substance: PIMAVANSERIN TARTRATE
     Dosage: 34 MG, QD
     Route: 048
  3. NUPLAZID [Suspect]
     Active Substance: PIMAVANSERIN TARTRATE
     Dosage: 34 MG, QD
     Route: 048
     Dates: start: 20210804
  4. NUPLAZID [Suspect]
     Active Substance: PIMAVANSERIN TARTRATE
     Indication: Parkinson^s disease
     Dosage: 34 MG, QD
     Route: 048
     Dates: start: 20170804
  5. NUPLAZID [Suspect]
     Active Substance: PIMAVANSERIN TARTRATE
     Dosage: 17 MG, QD
     Route: 048
     Dates: start: 2018, end: 2018
  6. NUPLAZID [Suspect]
     Active Substance: PIMAVANSERIN TARTRATE
     Dosage: 34 MG, QD
     Route: 048
     Dates: start: 2018
  7. MIDODRINE [Suspect]
     Active Substance: MIDODRINE
  8. AMPICILLIN [Concomitant]
     Active Substance: AMPICILLIN
  9. LIOTHYRONINE [Concomitant]
     Active Substance: LIOTHYRONINE
  10. CLONAZEPAM [Concomitant]
     Active Substance: CLONAZEPAM
  11. RIVASTIGMINE [Concomitant]
     Active Substance: RIVASTIGMINE
  12. NITROFURANTOIN [Concomitant]
     Active Substance: NITROFURANTOIN
  13. VOLTAREN [Concomitant]
     Active Substance: DICLOFENAC SODIUM
  14. DULOXETINE [Concomitant]
     Active Substance: DULOXETINE
  15. RYTARY [Concomitant]
     Active Substance: CARBIDOPA\LEVODOPA
  16. TAMSULOSIN [Concomitant]
     Active Substance: TAMSULOSIN
  17. LACTULOSE [Concomitant]
     Active Substance: LACTULOSE
  18. ESCITALOPRAM [Concomitant]
     Active Substance: ESCITALOPRAM OXALATE
  19. CARBIDOPA AND LEVODOPA [Concomitant]
     Active Substance: CARBIDOPA\LEVODOPA
  20. PRAMIPEXOLE [Concomitant]
     Active Substance: PRAMIPEXOLE
  21. SYNTHROID [Concomitant]
     Active Substance: LEVOTHYROXINE SODIUM
  22. TRIAMCINOLONE [Concomitant]
     Active Substance: TRIAMCINOLONE
  23. ATORVASTATIN [Concomitant]
     Active Substance: ATORVASTATIN
  24. ASPIRIN [Concomitant]
     Active Substance: ASPIRIN
  25. FAMOTIDINE [Concomitant]
     Active Substance: FAMOTIDINE
  26. ALBUTEROL [Concomitant]
     Active Substance: ALBUTEROL
  27. CIPROFLOXACIN [Concomitant]
     Active Substance: CIPROFLOXACIN

REACTIONS (17)
  - Death [Recovered/Resolved]
  - Transient ischaemic attack [Not Recovered/Not Resolved]
  - Product dose omission issue [Recovered/Resolved]
  - Underdose [Recovered/Resolved]
  - Infection [Unknown]
  - Dizziness [Not Recovered/Not Resolved]
  - Blood pressure increased [Not Recovered/Not Resolved]
  - Anxiety [Unknown]
  - Asthenia [Not Recovered/Not Resolved]
  - Withdrawal syndrome [Not Recovered/Not Resolved]
  - Insomnia [Not Recovered/Not Resolved]
  - Malaise [Not Recovered/Not Resolved]
  - Oedema peripheral [Unknown]
  - Confusional state [Unknown]
  - Hallucination [Unknown]
  - Hallucination [Not Recovered/Not Resolved]
  - Hallucination [Not Recovered/Not Resolved]

NARRATIVE: CASE EVENT DATE: 20170823
